FAERS Safety Report 9912621 (Version 1)
Quarter: 2014Q1

REPORT INFORMATION
  Report Type: Report from Study
  Country: US (occurrence: US)
  Receive Date: 20140220
  Receipt Date: 20140220
  Transmission Date: 20141002
  Serious: Yes (Other)
  Sender: FDA-Public Use
  Company Number: US-ROCHE-1346541

PATIENT
  Sex: Male

DRUGS (11)
  1. AVASTIN [Suspect]
     Indication: RETINAL VEIN OCCLUSION
     Route: 031
     Dates: start: 20111001
  2. AVASTIN [Suspect]
     Indication: RETINAL VEIN OCCLUSION
  3. AVASTIN [Suspect]
     Indication: CATARACT
  4. AVASTIN [Suspect]
     Indication: CYSTOID MACULAR OEDEMA
  5. LUCENTIS [Suspect]
     Indication: RETINAL VEIN OCCLUSION
     Dosage: OD
     Route: 050
     Dates: start: 20110927
  6. LUCENTIS [Suspect]
     Indication: RETINAL VEIN OCCLUSION
  7. LUCENTIS [Suspect]
     Indication: CATARACT
  8. LUCENTIS [Suspect]
     Indication: CYSTOID MACULAR OEDEMA
  9. XALATAN [Concomitant]
     Dosage: OD HS
     Route: 065
  10. COMBIGAN [Concomitant]
     Dosage: BID OD
     Route: 065
  11. TRAVATAN Z [Concomitant]
     Dosage: QHS OD
     Route: 065

REACTIONS (1)
  - Eye pruritus [Unknown]
